FAERS Safety Report 4962823-X (Version None)
Quarter: 2006Q2

REPORT INFORMATION
  Report Type: 
  Country: None (occurrence: None)
  Receive Date: 20060403
  Receipt Date: 20060403
  Transmission Date: 20061013
  Serious: Yes (Other)
  Sender: FDA-Public Use
  Company Number: None

PATIENT
  Sex: Male
  Weight: 100.2449 kg

DRUGS (9)
  1. BRIMONIDINE TARTRATE [Suspect]
     Indication: GLAUCOMA
     Dosage: 1 DROP   BID    OPHTHALMIC
     Route: 047
     Dates: start: 20020320, end: 20050307
  2. ALBUTEROL / IPRATROP [Concomitant]
  3. CLOPIDOGREL BISULFATE [Concomitant]
  4. DORZOLAMIDE HCL [Concomitant]
  5. FLUNISOLIDE [Concomitant]
  6. LATANOPROST [Concomitant]
  7. SYNTHROID [Concomitant]
  8. SIMVASTATIN [Concomitant]
  9. TERAZOSIN HCL [Concomitant]

REACTIONS (6)
  - DRUG HYPERSENSITIVITY [None]
  - EYE INFLAMMATION [None]
  - EYE IRRITATION [None]
  - EYE SWELLING [None]
  - OCULAR HYPERAEMIA [None]
  - SCLERAL DISCOLOURATION [None]
